FAERS Safety Report 5445275-5 (Version None)
Quarter: 2007Q3

REPORT INFORMATION
  Report Type: 
  Country: None (occurrence: None)
  Receive Date: 20070906
  Receipt Date: 20070830
  Transmission Date: 20080115
  Serious: Yes (Other)
  Sender: FDA-Public Use
  Company Number: CA-PFIZER INC-2007072524

PATIENT
  Sex: Female

DRUGS (2)
  1. CELEBREX [Suspect]
     Route: 048
  2. TRAMADOL HYDROCHLORIDE AND ACETAMINOPHEN [Suspect]
     Route: 048

REACTIONS (1)
  - ANAPHYLACTIC SHOCK [None]
